FAERS Safety Report 4542019-6 (Version None)
Quarter: 2004Q4

REPORT INFORMATION
  Report Type: 
  Country: None (occurrence: None)
  Receive Date: 20041223
  Receipt Date: 20041007
  Transmission Date: 20050328
  Serious: No
  Sender: FDA-Public Use
  Company Number: US-JNJFOC-20041003311

PATIENT
  Age: 27 Year
  Sex: Female
  Weight: 68.9467 kg

DRUGS (3)
  1. ORTHO EVRA [Suspect]
     Indication: CONTRACEPTION
     Dosage: 1 DOSE(S) 3 IN 4 WEEK TRANSDERMAL
     Route: 062
     Dates: start: 20040930
  2. WELLBUTRIN [Concomitant]
  3. FLAGYL [Concomitant]

REACTIONS (2)
  - NAUSEA [None]
  - VOMITING [None]
